FAERS Safety Report 4953035-4 (Version None)
Quarter: 2006Q1

REPORT INFORMATION
  Report Type: 
  Country: None (occurrence: None)
  Receive Date: 20060320
  Receipt Date: 20060307
  Transmission Date: 20060701
  Serious: Yes (Other)
  Sender: FDA-Public Use
  Company Number: 2006033532

PATIENT
  Sex: Male

DRUGS (8)
  1. VIAGRA [Suspect]
     Indication: ERECTILE DYSFUNCTION
     Dosage: ORAL
     Route: 048
     Dates: start: 20050101
  2. NITROGLYCERIN [Suspect]
     Indication: BLOOD PRESSURE
  3. NITROGLYCERIN [Suspect]
     Indication: CHEST PAIN
  4. VITAMINS (VITAMINS) [Concomitant]
  5. CLONIDINE [Concomitant]
  6. ATENOLOL [Concomitant]
  7. XALATAN [Concomitant]
  8. ALBUTEROL [Concomitant]

REACTIONS (10)
  - BLOOD CHOLESTEROL INCREASED [None]
  - BLOOD PRESSURE INCREASED [None]
  - BRAIN NEOPLASM [None]
  - CHEST PAIN [None]
  - CONDITION AGGRAVATED [None]
  - CONVULSION [None]
  - CORONARY ARTERY OCCLUSION [None]
  - DRUG INEFFECTIVE [None]
  - ERYTHEMA [None]
  - HEADACHE [None]
